FAERS Safety Report 9992291 (Version 2)
Quarter: 2014Q3

REPORT INFORMATION
  Report Type: Spontaneous
  Country: IN (occurrence: IN)
  Receive Date: 20140310
  Receipt Date: 20140807
  Transmission Date: 20150326
  Serious: Yes (Death, Other)
  Sender: FDA-Public Use
  Company Number: IN-JNJFOC-20140216156

PATIENT

DRUGS (6)
  1. DOXORUBICIN HYDROCHLORIDE. [Suspect]
     Active Substance: DOXORUBICIN HYDROCHLORIDE
     Indication: DIFFUSE LARGE B-CELL LYMPHOMA
     Dosage: ON DAY 1
     Route: 042
  2. DOXORUBICIN [Suspect]
     Active Substance: DOXORUBICIN
     Indication: DIFFUSE LARGE B-CELL LYMPHOMA
     Dosage: ON DAY 1
     Route: 065
  3. RITUXIMAB [Suspect]
     Active Substance: RITUXIMAB
     Indication: DIFFUSE LARGE B-CELL LYMPHOMA
     Route: 065
  4. VINCRISTINE [Suspect]
     Active Substance: VINCRISTINE
     Indication: DIFFUSE LARGE B-CELL LYMPHOMA
     Dosage: ON DAY 1
     Route: 065
  5. PREDNISONE. [Suspect]
     Active Substance: PREDNISONE
     Indication: DIFFUSE LARGE B-CELL LYMPHOMA
     Dosage: ON DAYS 1-5
     Route: 048
  6. CYCLOPHOSPHAMIDE. [Suspect]
     Active Substance: CYCLOPHOSPHAMIDE
     Indication: DIFFUSE LARGE B-CELL LYMPHOMA
     Dosage: ON DAY 1
     Route: 065

REACTIONS (15)
  - Diffuse large B-cell lymphoma [Fatal]
  - Mucosal inflammation [Recovering/Resolving]
  - Cytomegalovirus viraemia [Unknown]
  - Infusion related reaction [Recovering/Resolving]
  - Congestive cardiomyopathy [Unknown]
  - Urinary tract infection [Unknown]
  - Neuropathy peripheral [Recovering/Resolving]
  - Death [Fatal]
  - Herpes zoster [Unknown]
  - Sepsis [Fatal]
  - Febrile neutropenia [Recovering/Resolving]
  - Neutropenia [Fatal]
  - Pneumonia [Recovering/Resolving]
  - Diarrhoea [Recovering/Resolving]
  - Intestinal perforation [Unknown]
